FAERS Safety Report 8272399-X (Version None)
Quarter: 2012Q2

REPORT INFORMATION
  Report Type: 
  Country: None (occurrence: None)
  Receive Date: 20120410
  Receipt Date: 20120326
  Transmission Date: 20120825
  Serious: Yes (Hospitalization, Other)
  Sender: FDA-Public Use
  Company Number: CHPA2012US005875

PATIENT
  Age: 69 Year
  Sex: Female

DRUGS (4)
  1. TYLENOL (CAPLET) [Concomitant]
     Dosage: UNK, PRN
  2. MAALOX ANTACID WITH ANTI-GAS REGULAR [Suspect]
     Indication: GASTROOESOPHAGEAL REFLUX DISEASE
     Dosage: 2 TSP, 5-6 TIMES PER DAY
     Route: 048
  3. MAALOX ANTACID/ANTIGAS RS LIQ SMTHCHERRY [Suspect]
     Indication: GASTROOESOPHAGEAL REFLUX DISEASE
     Dosage: 2 TSP, 5-6 TIMES PER DAY
     Route: 048
  4. MAALOX ANTACID/ANTIGAS RS LIQ COOL MINT [Suspect]
     Indication: GASTROOESOPHAGEAL REFLUX DISEASE
     Dosage: 2 TSP, ONCE/SINGLE
     Route: 048

REACTIONS (17)
  - VITAMIN D DECREASED [None]
  - DIARRHOEA [None]
  - HEART RATE IRREGULAR [None]
  - GASTROOESOPHAGEAL REFLUX DISEASE [None]
  - MALABSORPTION [None]
  - CARCINOID SYNDROME [None]
  - BLOOD POTASSIUM DECREASED [None]
  - PROTEIN ALBUMIN RATIO DECREASED [None]
  - ABDOMINAL DISCOMFORT [None]
  - INCORRECT DRUG ADMINISTRATION DURATION [None]
  - ATRIAL FIBRILLATION [None]
  - OFF LABEL USE [None]
  - OESOPHAGITIS [None]
  - ASTHENIA [None]
  - HEPATIC LESION [None]
  - GASTRITIS [None]
  - INAPPROPRIATE SCHEDULE OF DRUG ADMINISTRATION [None]
